FAERS Safety Report 23239808 (Version 1)
Quarter: 2023Q4

REPORT INFORMATION
  Report Type: Spontaneous
  Country: US (occurrence: None)
  Receive Date: 20231128
  Receipt Date: 20231128
  Transmission Date: 20240110
  Serious: No
  Sender: FDA-Public Use
  Company Number: None

PATIENT
  Sex: Male

DRUGS (4)
  1. AMBRISENTAN [Suspect]
     Active Substance: AMBRISENTAN
     Indication: Pulmonary arterial hypertension
     Dosage: FREQUENCY : DAILY;?
     Route: 048
     Dates: start: 202101
  2. REMTY WNTY RPLMT PUMP KIT [Concomitant]
  3. ADEMPAS [Concomitant]
  4. REMODULIN MDV [Concomitant]

REACTIONS (3)
  - Device infusion issue [None]
  - Weight decreased [None]
  - Loss of consciousness [None]
